FAERS Safety Report 7025410-8 (Version None)
Quarter: 2010Q4

REPORT INFORMATION
  Report Type: 
  Country: None (occurrence: None)
  Receive Date: 20101001
  Receipt Date: 20100923
  Transmission Date: 20110411
  Serious: Yes (Other)
  Sender: FDA-Public Use
  Company Number: US-JNJCH-2010018947

PATIENT

DRUGS (1)
  1. NEOSPORIN LT LIP TREATMENT [Suspect]
     Indication: LIP DISORDER
     Dosage: TEXT:UNSPECIFIED
     Route: 061

REACTIONS (3)
  - LIP BLISTER [None]
  - LIP DRY [None]
  - LIP SWELLING [None]
